APPROVED DRUG PRODUCT: FLUOXETINE HYDROCHLORIDE
Active Ingredient: FLUOXETINE HYDROCHLORIDE
Strength: EQ 20MG BASE
Dosage Form/Route: CAPSULE;ORAL
Application: A078045 | Product #002
Applicant: NATCO PHARMA USA LLC
Approved: Nov 17, 2008 | RLD: No | RS: No | Type: DISCN